FAERS Safety Report 8850980 (Version 1)
Quarter: 2012Q4

REPORT INFORMATION
  Report Type: 
  Country: AU (occurrence: AU)
  Receive Date: 20121019
  Receipt Date: 20121019
  Transmission Date: 20130627
  Serious: Yes (Hospitalization)
  Sender: FDA-Public Use
  Company Number: PHHY2012AU092894

PATIENT
  Age: 75 Year
  Sex: Female

DRUGS (9)
  1. ACLASTA [Suspect]
     Dosage: 5 mg, UNK
     Route: 042
     Dates: start: 20101016
  2. ACLASTA [Suspect]
     Dosage: 5 mg, UNK
     Route: 042
     Dates: start: 20111025
  3. FRUSEMIDE [Concomitant]
     Indication: FLUID RETENTION
     Dosage: 20 mg, UNK
  4. PRILACE [Concomitant]
     Indication: CARDIAC DISORDER
     Dosage: 5 mg, UNK
  5. ATORVASTATIN [Concomitant]
     Indication: BLOOD CHOLESTEROL
     Dosage: 40 mg, UNK
  6. STEMZINE [Concomitant]
     Indication: VERTIGO
     Dosage: 5 mg, at night
  7. LYRICA [Concomitant]
     Indication: PAIN
     Dosage: 75 mg, at night
  8. ALPRAZOLAM [Concomitant]
     Indication: SLEEP DISORDER
     Dosage: 10 mg, at night
  9. TEMAZEPAM [Concomitant]
     Indication: SLEEP DISORDER
     Dosage: 10 mg, at night

REACTIONS (9)
  - Fall [Recovering/Resolving]
  - Device failure [Recovering/Resolving]
  - Multiple fractures [Recovering/Resolving]
  - Femur fracture [Recovering/Resolving]
  - Hip fracture [Recovering/Resolving]
  - Head injury [Recovering/Resolving]
  - Loss of consciousness [Recovering/Resolving]
  - Contusion [Recovering/Resolving]
  - Vertigo [Recovering/Resolving]
